FAERS Safety Report 6414062-3 (Version None)
Quarter: 2009Q4

REPORT INFORMATION
  Report Type: 
  Country: None (occurrence: None)
  Receive Date: 20091026
  Receipt Date: 20091020
  Transmission Date: 20100525
  Serious: Yes (Death)
  Sender: FDA-Public Use
  Company Number: BE-ELI_LILLY_AND_COMPANY-BE200910005059

PATIENT

DRUGS (1)
  1. GEMZAR [Suspect]
     Indication: HEAD AND NECK CANCER
     Dosage: UNK, UNK
     Route: 042

REACTIONS (3)
  - MUCOSAL INFLAMMATION [None]
  - NEUTROPENIA [None]
  - SEPTIC SHOCK [None]
